FAERS Safety Report 18368817 (Version 2)
Quarter: 2020Q4

REPORT INFORMATION
  Report Type: Report from Study
  Country: US (occurrence: US)
  Receive Date: 20201010
  Receipt Date: 20201217
  Transmission Date: 20210114
  Serious: Yes (Hospitalization, Disabling, Other)
  Sender: FDA-Public Use
  Company Number: US-UCBSA-2020004225

PATIENT
  Sex: Female
  Weight: 113.4 kg

DRUGS (32)
  1. CALCIUM + VITAMIN D3 [Concomitant]
     Active Substance: CALCIUM CARBONATE\CHOLECALCIFEROL
  2. ZOFRAN [Concomitant]
     Active Substance: ONDANSETRON HYDROCHLORIDE
  3. TRILEPTAL [Concomitant]
     Active Substance: OXCARBAZEPINE
  4. LACOSAMIDE. [Suspect]
     Active Substance: LACOSAMIDE
     Indication: EPILEPSY
     Dosage: 200 MILLIGRAM, 2X/DAY (BID)
  5. NEURONTIN [Concomitant]
     Active Substance: GABAPENTIN
  6. AIMOVIG [Concomitant]
     Active Substance: ERENUMAB-AOOE
  7. ALPRAZOLAM. [Concomitant]
     Active Substance: ALPRAZOLAM
  8. BREO ELLIPTA [Concomitant]
     Active Substance: FLUTICASONE FUROATE\VILANTEROL TRIFENATATE
  9. CELLCEPT [Concomitant]
     Active Substance: MYCOPHENOLATE MOFETIL\MYCOPHENOLATE MOFETIL HYDROCHLORIDE
  10. FAMOTIDINE. [Concomitant]
     Active Substance: FAMOTIDINE
  11. FLONASE ALLERGY RELIEF [Concomitant]
     Active Substance: FLUTICASONE PROPIONATE
  12. METFORMIN [Concomitant]
     Active Substance: METFORMIN HYDROCHLORIDE
  13. NIMOTOP [Concomitant]
     Active Substance: NIMODIPINE
  14. TRENTAL [Concomitant]
     Active Substance: PENTOXIFYLLINE
  15. ZYRTEC [Concomitant]
     Active Substance: CETIRIZINE HYDROCHLORIDE
  16. BIOTIN [Concomitant]
     Active Substance: BIOTIN
  17. WELLBUTRIN [Concomitant]
     Active Substance: BUPROPION HYDROCHLORIDE
  18. TORADOL [Concomitant]
     Active Substance: KETOROLAC TROMETHAMINE
  19. MIRENA [Concomitant]
     Active Substance: LEVONORGESTREL
  20. METOPROLOL. [Concomitant]
     Active Substance: METOPROLOL
  21. OXYBUTYNIN. [Concomitant]
     Active Substance: OXYBUTYNIN CHLORIDE
  22. ASPIRIN (E.C.) [Concomitant]
     Active Substance: ASPIRIN
  23. CELECOXIB. [Concomitant]
     Active Substance: CELECOXIB
  24. CYMBALTA [Concomitant]
     Active Substance: DULOXETINE HYDROCHLORIDE
  25. INDOCIN [Concomitant]
     Active Substance: INDOMETHACIN
  26. FLUCONAZOLE. [Concomitant]
     Active Substance: FLUCONAZOLE
  27. MEDROL [Concomitant]
     Active Substance: METHYLPREDNISOLONE
  28. MONTELUKAST [Concomitant]
     Active Substance: MONTELUKAST SODIUM
  29. ATORVASTATIN [Concomitant]
     Active Substance: ATORVASTATIN
  30. TIZANIDINE. [Concomitant]
     Active Substance: TIZANIDINE
  31. CLOTRIMAZOLE AND BETAMETHASONE [Concomitant]
     Active Substance: BETAMETHASONE\CLOTRIMAZOLE
  32. DICLOFENAC [Concomitant]
     Active Substance: DICLOFENAC

REACTIONS (12)
  - Hemiplegic migraine [Not Recovered/Not Resolved]
  - Nausea [Unknown]
  - Loss of consciousness [Unknown]
  - Ankle fracture [Unknown]
  - Cognitive disorder [Not Recovered/Not Resolved]
  - Trigeminal neuralgia [Unknown]
  - Aphasia [Not Recovered/Not Resolved]
  - Fall [Unknown]
  - Ill-defined disorder [Not Recovered/Not Resolved]
  - Illness [Not Recovered/Not Resolved]
  - Ophthalmoplegia [Not Recovered/Not Resolved]
  - Neurosarcoidosis [Unknown]

NARRATIVE: CASE EVENT DATE: 2010
